FAERS Safety Report 9769567 (Version 1)
Quarter: 2013Q4

REPORT INFORMATION
  Report Type: Spontaneous
  Country: BR (occurrence: BR)
  Receive Date: 20131218
  Receipt Date: 20131218
  Transmission Date: 20140711
  Serious: Yes (Hospitalization)
  Sender: FDA-Public Use
  Company Number: BR-ASTRAZENECA-2013SE90758

PATIENT
  Age: 82 Year
  Sex: Female
  Weight: 57 kg

DRUGS (4)
  1. CRESTOR [Suspect]
     Indication: BLOOD CHOLESTEROL INCREASED
     Route: 048
  2. BRILINTA [Suspect]
     Indication: VENOUS OCCLUSION
     Route: 048
     Dates: start: 201312
  3. INSULIN [Concomitant]
     Indication: DIABETES MELLITUS
     Dosage: DAILY
     Route: 058
  4. JANUMET [Concomitant]
     Indication: DIABETES MELLITUS
     Dosage: DAILY
     Route: 048

REACTIONS (2)
  - Venous occlusion [Recovered/Resolved]
  - Off label use [Not Recovered/Not Resolved]
